FAERS Safety Report 5363529-8 (Version None)
Quarter: 2007Q2

REPORT INFORMATION
  Report Type: 
  Country: None (occurrence: None)
  Receive Date: 20070618
  Receipt Date: 20070618
  Transmission Date: 20071010
  Serious: Yes (Hospitalization)
  Sender: FDA-Public Use
  Company Number: None

PATIENT
  Sex: Male
  Weight: 73 kg

DRUGS (1)
  1. CETXIMAB 100MG VAILS BRSITOL MYER SQUIBB [Suspect]
     Indication: PANCREATIC CARCINOMA
     Dosage: 460 MG WEEKLY IV DRIP
     Route: 041
     Dates: start: 20070206, end: 20070612

REACTIONS (3)
  - CHILLS [None]
  - PYREXIA [None]
  - STENT PLACEMENT [None]
